FAERS Safety Report 4731568-3 (Version None)
Quarter: 2005Q3

REPORT INFORMATION
  Report Type: 
  Country: None (occurrence: None)
  Receive Date: 20050801
  Receipt Date: 20050801
  Transmission Date: 20060218
  Serious: Yes (Hospitalization)
  Sender: FDA-Public Use
  Company Number: None

PATIENT
  Age: 65 Year
  Sex: Male
  Weight: 92.3977 kg

DRUGS (14)
  1. NEXIUM [Suspect]
     Indication: OESOPHAGITIS
     Dosage: 40 MG PO DAILY
     Route: 048
     Dates: start: 20050620
  2. NEXIUM [Suspect]
     Indication: OESOPHAGITIS
     Dosage: 40 MG PO DAILY
     Route: 048
     Dates: start: 20050715
  3. CAPTOPRIL [Concomitant]
  4. SPIRONOLACTONE [Concomitant]
  5. INSULIN [Concomitant]
  6. HUMALOG [Concomitant]
  7. NITROGLYCERIN [Concomitant]
  8. ASPIRIN [Concomitant]
  9. SYNTHROID [Concomitant]
  10. INDERAL LA [Concomitant]
  11. TYLENOL (CAPLET) [Concomitant]
  12. IBUPROFEN [Concomitant]
  13. METOLAZONE [Concomitant]
  14. LASIX [Concomitant]

REACTIONS (3)
  - CONFUSIONAL STATE [None]
  - DISORIENTATION [None]
  - HEPATIC ENCEPHALOPATHY [None]
